FAERS Safety Report 7626044-4 (Version None)
Quarter: 2011Q3

REPORT INFORMATION
  Report Type: 
  Country: None (occurrence: None)
  Receive Date: 20110721
  Receipt Date: 20110708
  Transmission Date: 20111222
  Serious: Yes (Other)
  Sender: FDA-Public Use
  Company Number: US-AMGEN-USASP2011034819

PATIENT
  Sex: Male

DRUGS (1)
  1. ENBREL [Suspect]
     Dosage: UNK
     Dates: start: 19990401

REACTIONS (8)
  - VOMITING [None]
  - THROMBOSIS [None]
  - DIABETES MELLITUS [None]
  - ABDOMINAL DISCOMFORT [None]
  - WEIGHT DECREASED [None]
  - DIARRHOEA [None]
  - MALAISE [None]
  - TINEA PEDIS [None]
